FAERS Safety Report 17299650 (Version 2)
Quarter: 2020Q1

REPORT INFORMATION
  Report Type: Spontaneous
  Country: US (occurrence: US)
  Receive Date: 20200121
  Receipt Date: 20200121
  Transmission Date: 20200409
  Serious: No
  Sender: FDA-Public Use
  Company Number: US-BAUSCH-BL-2020-002076

PATIENT
  Age: 66 Year
  Sex: Female
  Weight: 54.48 kg

DRUGS (1)
  1. LUMIFY [Suspect]
     Active Substance: BRIMONIDINE TARTRATE
     Indication: OCULAR HYPERAEMIA
     Dosage: INTRAOCULAR
     Route: 047
     Dates: start: 20200117, end: 20200117

REACTIONS (4)
  - Eye pain [Recovered/Resolved]
  - Inappropriate schedule of product administration [Unknown]
  - Eye irritation [Recovered/Resolved]
  - Ocular discomfort [Recovered/Resolved]

NARRATIVE: CASE EVENT DATE: 202001
